FAERS Safety Report 17718803 (Version 1)
Quarter: 2020Q2

REPORT INFORMATION
  Report Type: Spontaneous
  Country: US (occurrence: US)
  Receive Date: 20200428
  Receipt Date: 20200428
  Transmission Date: 20200714
  Serious: No
  Sender: FDA-Public Use
  Company Number: None

PATIENT
  Age: 79 Year
  Sex: Female

DRUGS (2)
  1. DEXAMETHASONE 20 MG/5 ML SOLUTION INJECTABLE EN AMPOULE [Suspect]
     Active Substance: DEXAMETHASONE
  2. FLUOROURACIL 1000 MG/20 ML [Suspect]
     Active Substance: FLUOROURACIL

REACTIONS (1)
  - Disease progression [None]

NARRATIVE: CASE EVENT DATE: 20200428
